FAERS Safety Report 5801636-3 (Version None)
Quarter: 2008Q3

REPORT INFORMATION
  Report Type: 
  Country: None (occurrence: None)
  Receive Date: 20080707
  Receipt Date: 20080701
  Transmission Date: 20090109
  Serious: Yes (Hospitalization)
  Sender: FDA-Public Use
  Company Number: A0735591A

PATIENT
  Age: 74 Year
  Sex: Female

DRUGS (8)
  1. FLOVENT [Suspect]
     Indication: ASTHMA
     Dosage: 2PUFF TWICE PER DAY
     Route: 055
     Dates: start: 20000101
  2. ZETIA [Concomitant]
  3. HYZAAR [Concomitant]
  4. MELOXICAM [Concomitant]
  5. MIRAPEX [Concomitant]
  6. WELLBUTRIN XL [Concomitant]
  7. ALENDRONATE SODIUM [Concomitant]
  8. PAROXETINE HCL [Concomitant]

REACTIONS (1)
  - FOOD POISONING [None]
